FAERS Safety Report 6543556-5 (Version None)
Quarter: 2010Q1

REPORT INFORMATION
  Report Type: 
  Country: None (occurrence: None)
  Receive Date: 20100115
  Receipt Date: 20100113
  Transmission Date: 20100710
  Serious: Yes (Death, Life-Threatening)
  Sender: FDA-Public Use
  Company Number: 2008SP010928

PATIENT
  Age: 43 Year
  Sex: Female
  Weight: 43 kg

DRUGS (15)
  1. TEMODAL [Suspect]
     Indication: GLIOBLASTOMA MULTIFORME
     Dosage: 150 MG/M2; QD; PO
     Route: 048
     Dates: start: 20061129, end: 20061203
  2. TEMODAL [Suspect]
     Indication: GLIOBLASTOMA MULTIFORME
     Dosage: 150 MG/M2; QD; PO
     Route: 048
     Dates: start: 20061227, end: 20061231
  3. TEMODAL [Suspect]
     Indication: GLIOBLASTOMA MULTIFORME
     Dosage: 150 MG/M2; QD; PO
     Route: 048
     Dates: start: 20070130, end: 20070203
  4. ZOFRAN [Concomitant]
  5. LOXONIN [Concomitant]
  6. POSTERISAN FORTE [Concomitant]
  7. DEPAKENE [Concomitant]
  8. PREDNISOLONE [Concomitant]
  9. MUCOSTA [Concomitant]
  10. MEVALOTIN [Concomitant]
  11. MANNITOL [Concomitant]
  12. GLYCEOL [Concomitant]
  13. RINDERON [Concomitant]
  14. STRONGER NEO MINOPHAGEN C [Concomitant]
  15. ALEVIATIN [Concomitant]

REACTIONS (8)
  - BONE MARROW FAILURE [None]
  - DISEASE PROGRESSION [None]
  - EXTRADURAL ABSCESS [None]
  - GENERAL PHYSICAL CONDITION ABNORMAL [None]
  - GLIOBLASTOMA MULTIFORME [None]
  - HYDROCEPHALUS [None]
  - METABOLIC ACIDOSIS [None]
  - POSTOPERATIVE WOUND INFECTION [None]
